FAERS Safety Report 20154076 (Version 1)
Quarter: 2021Q4

REPORT INFORMATION
  Report Type: Spontaneous
  Country: US (occurrence: US)
  Receive Date: 20211207
  Receipt Date: 20211207
  Transmission Date: 20220303
  Serious: No
  Sender: FDA-Public Use
  Company Number: US-PRINSTON PHARMACEUTICAL INC.-2021PRN00061

PATIENT
  Sex: Female

DRUGS (4)
  1. RISPERIDONE [Suspect]
     Active Substance: RISPERIDONE
     Indication: Schizophrenia
     Dosage: 4 MG, 1X/DAY BEFORE GOING TO BED
     Route: 048
     Dates: end: 202101
  2. RISPERIDONE [Suspect]
     Active Substance: RISPERIDONE
     Dosage: 4 MG, 1X/DAY BEFORE GOING TO BED
     Route: 048
     Dates: start: 202101
  3. VITAMINS [Concomitant]
     Active Substance: VITAMINS
  4. UNSPECIFIED INGREDIENT [Concomitant]
     Active Substance: UNSPECIFIED INGREDIENT

REACTIONS (2)
  - Product use complaint [Not Recovered/Not Resolved]
  - Dyspepsia [Not Recovered/Not Resolved]

NARRATIVE: CASE EVENT DATE: 20210101
